FAERS Safety Report 19726094 (Version 4)
Quarter: 2022Q1

REPORT INFORMATION
  Report Type: Other
  Country: CA (occurrence: None)
  Receive Date: 20210820
  Receipt Date: 20220211
  Transmission Date: 20220423
  Serious: Yes (Hospitalization)
  Sender: FDA-Public Use
  Company Number: CA-ROCHE-2893883

PATIENT
  Age: 39 Year
  Sex: Female

DRUGS (8)
  1. OCREVUS [Suspect]
     Active Substance: OCRELIZUMAB
     Indication: Relapsing-remitting multiple sclerosis
     Dosage: 300 MG AT DAY 0 AND 14, THEN 600 MG EVERY 6 MONTH
     Route: 042
     Dates: start: 20190812
  2. COVID-19 VACCINE [Concomitant]
  3. BACLOFEN [Concomitant]
     Active Substance: BACLOFEN
  4. DULOXETINE [Concomitant]
     Active Substance: DULOXETINE
  5. DILAUDID [Concomitant]
     Active Substance: HYDROMORPHONE HYDROCHLORIDE
  6. FLEXERIL [Concomitant]
     Active Substance: CYCLOBENZAPRINE HYDROCHLORIDE
  7. ROBAXIN [Concomitant]
     Active Substance: METHOCARBAMOL
  8. ADVIL [Concomitant]
     Active Substance: IBUPROFEN

REACTIONS (4)
  - Urinary tract infection [Recovered/Resolved]
  - Vision blurred [Not Recovered/Not Resolved]
  - Urinary tract infection [Recovered/Resolved]
  - Memory impairment [Not Recovered/Not Resolved]

NARRATIVE: CASE EVENT DATE: 20210509
